FAERS Safety Report 6330502-2 (Version None)
Quarter: 2009Q3

REPORT INFORMATION
  Report Type: 
  Country: None (occurrence: None)
  Receive Date: 20090827
  Receipt Date: 20080812
  Transmission Date: 20100115
  Serious: No
  Sender: FDA-Public Use
  Company Number: A0742429A

PATIENT
  Age: 41 Year
  Sex: Female

DRUGS (3)
  1. ZOVIRAX [Suspect]
     Indication: DRUG USE FOR UNKNOWN INDICATION
     Dosage: 400MG TWICE PER DAY
     Route: 048
     Dates: start: 20080708, end: 20080808
  2. NEURONTIN [Concomitant]
  3. NEXIUM [Concomitant]

REACTIONS (1)
  - DRUG INEFFECTIVE [None]
